FAERS Safety Report 6473545-0 (Version None)
Quarter: 2009Q4

REPORT INFORMATION
  Report Type: 
  Country: None (occurrence: None)
  Receive Date: 20091204
  Receipt Date: 20090511
  Transmission Date: 20100525
  Serious: No
  Sender: FDA-Public Use
  Company Number: US-ELI_LILLY_AND_COMPANY-US200812004610

PATIENT
  Sex: Female

DRUGS (9)
  1. FORTEO [Suspect]
     Indication: OSTEOPOROSIS
     Dosage: 20 UG, DAILY (1/D)
     Dates: start: 20080701
  2. FORTEO [Suspect]
     Dosage: 20 UG, DAILY (1/D)
     Dates: start: 20080701
  3. SIMVASTATIN [Concomitant]
     Dosage: 10 MG, DAILY (1/D)
  4. LODOPIN [Concomitant]
     Dosage: 2.5 MG, DAILY (1/D)
  5. ATENOLOL [Concomitant]
     Dosage: 25 MG, DAILY (1/D)
  6. CALCIUM WITH VITAMIN D [Concomitant]
  7. MULTI-VITAMIN [Concomitant]
  8. ACETAMINOPHEN [Concomitant]
     Dosage: 650 MG, 2/D
  9. AMLODIPINE [Concomitant]

REACTIONS (3)
  - ARTHRALGIA [None]
  - PAIN [None]
  - URINE ELECTROPHORESIS ABNORMAL [None]
